FAERS Safety Report 11756155 (Version 3)
Quarter: 2015Q4

REPORT INFORMATION
  Report Type: Report from Study
  Country: JP (occurrence: JP)
  Receive Date: 20151119
  Receipt Date: 20151230
  Transmission Date: 20160304
  Serious: Yes (Death, Hospitalization)
  Sender: FDA-Public Use
  Company Number: JP-CELGENE-JPN-2015113643

PATIENT
  Age: 58 Year
  Sex: Female

DRUGS (7)
  1. POMALYST [Suspect]
     Active Substance: POMALIDOMIDE
     Indication: PLASMA CELL MYELOMA
     Dosage: 4 MILLIGRAM
     Route: 048
     Dates: start: 20150530, end: 20151017
  2. RABEPRAZOLE [Concomitant]
     Active Substance: RABEPRAZOLE
     Indication: PROPHYLAXIS
     Route: 048
     Dates: start: 20140124, end: 20151108
  3. LENADEX [Suspect]
     Active Substance: DEXAMETHASONE ACETATE
     Indication: PLASMA CELL MYELOMA
     Route: 048
     Dates: start: 20120720, end: 20151013
  4. ZOVIRAX [Concomitant]
     Active Substance: ACYCLOVIR
     Indication: PROPHYLAXIS
     Route: 048
     Dates: start: 20140617, end: 20151108
  5. CALONAL [Concomitant]
     Active Substance: ACETAMINOPHEN
     Indication: PLASMA CELL MYELOMA
     Route: 048
     Dates: start: 20150928, end: 20151025
  6. TAKEPRON [Concomitant]
     Active Substance: LANSOPRAZOLE
     Indication: PROPHYLAXIS
     Route: 041
     Dates: start: 20151020, end: 20151028
  7. LIXIANA [Concomitant]
     Active Substance: EDOXABAN TOSILATE MONOHYDRATE
     Indication: DEEP VEIN THROMBOSIS
     Route: 048
     Dates: start: 20150521, end: 20151108

REACTIONS (3)
  - Pneumocystis jirovecii pneumonia [Recovering/Resolving]
  - Blood pressure decreased [Fatal]
  - Hypercalcaemia [Unknown]

NARRATIVE: CASE EVENT DATE: 201510
